FAERS Safety Report 7593021-1 (Version None)
Quarter: 2011Q3

REPORT INFORMATION
  Report Type: 
  Country: None (occurrence: None)
  Receive Date: 20110706
  Receipt Date: 20110624
  Transmission Date: 20111222
  Serious: Yes (Hospitalization, Disabling, Other)
  Sender: FDA-Public Use
  Company Number: IT-GLAXOSMITHKLINE-B0730569A

PATIENT
  Sex: Female
  Weight: 74 kg

DRUGS (5)
  1. CHLORAMBUCIL [Suspect]
     Indication: CHRONIC LYMPHOCYTIC LEUKAEMIA
     Dosage: 40MG PER DAY
     Dates: start: 20101123, end: 20110322
  2. GLIBOMET [Concomitant]
     Indication: DIABETES MELLITUS
  3. ASCRIPTIN [Concomitant]
     Indication: HYPERTENSION
  4. HYDROCHLOROTHIAZIDE [Concomitant]
     Indication: HYPERTENSION
     Dates: start: 20050101
  5. NORMOSOL [Concomitant]
     Indication: ELECTROLYTE IMBALANCE

REACTIONS (3)
  - NEUTROPENIA [None]
  - PYREXIA [None]
  - ARTHRITIS [None]
